FAERS Safety Report 5236577-6 (Version None)
Quarter: 2007Q1

REPORT INFORMATION
  Report Type: 
  Country: None (occurrence: None)
  Receive Date: 20070208
  Receipt Date: 20070124
  Transmission Date: 20070707
  Serious: Yes (Hospitalization, Other)
  Sender: FDA-Public Use
  Company Number: 2006BI002377

PATIENT
  Age: 50 Year
  Sex: Female

DRUGS (2)
  1. NATALIZUMAB [Suspect]
     Indication: MULTIPLE SCLEROSIS
     Dosage: IV
     Route: 042
     Dates: start: 20050101, end: 20050101
  2. AVONEX [Concomitant]

REACTIONS (7)
  - COORDINATION ABNORMAL [None]
  - HEADACHE [None]
  - KNEE ARTHROPLASTY [None]
  - MULTIPLE SCLEROSIS [None]
  - PROCEDURAL PAIN [None]
  - SUICIDAL IDEATION [None]
  - THROMBOSIS [None]
